FAERS Safety Report 23570527 (Version 1)
Quarter: 2024Q1

REPORT INFORMATION
  Report Type: Report from Study
  Country: GB (occurrence: GB)
  Receive Date: 20240227
  Receipt Date: 20240227
  Transmission Date: 20240410
  Serious: Yes (Death, Hospitalization, Other)
  Sender: FDA-Public Use
  Company Number: GB-KOREA IPSEN Pharma-2022-27713

PATIENT
  Age: 86 Year
  Sex: Male

DRUGS (2)
  1. LANREOTIDE ACETATE [Suspect]
     Active Substance: LANREOTIDE ACETATE
     Indication: Neuroendocrine tumour
     Dosage: 60MG/0.3ML
     Route: 058
  2. DEVICE [Suspect]
     Active Substance: DEVICE
     Indication: Neuroendocrine tumour

REACTIONS (5)
  - Myocardial infarction [Fatal]
  - Cerebrovascular accident [Fatal]
  - Cholecystitis infective [Unknown]
  - Adverse event [Unknown]
  - Off label use [Unknown]

NARRATIVE: CASE EVENT DATE: 20220101
